FAERS Safety Report 15729599 (Version 1)
Quarter: 2018Q4

REPORT INFORMATION
  Report Type: Spontaneous
  Country: SE (occurrence: SE)
  Receive Date: 20181217
  Receipt Date: 20181217
  Transmission Date: 20190205
  Serious: Yes (Hospitalization, Other)
  Sender: FDA-Public Use
  Company Number: SE-PFIZER INC-2004195357SE

PATIENT
  Age: 51 Year
  Sex: Male

DRUGS (2)
  1. FLUOROURACIL FAULDING [Suspect]
     Active Substance: FLUOROURACIL SODIUM
     Indication: COLON CANCER
     Dosage: UNK
  2. CAMPTOSAR [Suspect]
     Active Substance: IRINOTECAN HYDROCHLORIDE
     Indication: COLON CANCER
     Dosage: UNK

REACTIONS (2)
  - Electrocardiogram change [Recovered/Resolved]
  - Myocarditis [Recovered/Resolved]

NARRATIVE: CASE EVENT DATE: 20040116
